FAERS Safety Report 5862456-7 (Version None)
Quarter: 2008Q3

REPORT INFORMATION
  Report Type: 
  Country: None (occurrence: None)
  Receive Date: 20080828
  Receipt Date: 20080818
  Transmission Date: 20090109
  Serious: Yes (Other)
  Sender: FDA-Public Use
  Company Number: IE-ELI_LILLY_AND_COMPANY-IE200808004619

PATIENT
  Sex: Male

DRUGS (3)
  1. ZYPREXA [Suspect]
     Indication: BIPOLAR DISORDER
     Dosage: 12.5 MG, DAILY (1/D)
     Route: 048
     Dates: start: 20070801
  2. NEXIUM [Concomitant]
     Dosage: 40 UNK, UNK
  3. FRUMIL [Concomitant]
     Dosage: UNK, DAILY (1/D)

REACTIONS (1)
  - PULMONARY EMBOLISM [None]
